FAERS Safety Report 23228140 (Version 1)
Quarter: 2023Q4

REPORT INFORMATION
  Report Type: Spontaneous
  Country: US (occurrence: US)
  Receive Date: 20231125
  Receipt Date: 20231125
  Transmission Date: 20240109
  Serious: No
  Sender: FDA-Public Use
  Company Number: US-ABBVIE-5507963

PATIENT
  Sex: Male

DRUGS (1)
  1. HUMIRA [Suspect]
     Active Substance: ADALIMUMAB
     Indication: Rheumatoid arthritis
     Dosage: FORM STRENGTH: 40 MILLIGRAM
     Route: 058

REACTIONS (6)
  - Injection site erythema [Unknown]
  - Device issue [Not Recovered/Not Resolved]
  - Product administration error [Unknown]
  - Injection site papule [Unknown]
  - Injection site pain [Unknown]
  - Injection site haemorrhage [Unknown]
